FAERS Safety Report 13047576 (Version 3)
Quarter: 2017Q1

REPORT INFORMATION
  Report Type: Report from Study
  Country: DE (occurrence: DE)
  Receive Date: 20161220
  Receipt Date: 20170216
  Transmission Date: 20170428
  Serious: Yes (Death, Hospitalization)
  Sender: FDA-Public Use
  Company Number: DE-SA-2016SA221937

PATIENT
  Age: 78 Year
  Sex: Male
  Weight: 77.8 kg

DRUGS (5)
  1. ZALTRAP [Suspect]
     Active Substance: ZIV-AFLIBERCEPT
     Indication: COLORECTAL CANCER METASTATIC
     Route: 042
     Dates: start: 20161004, end: 20161004
  2. 5 FU [Concomitant]
     Active Substance: FLUOROURACIL
     Indication: COLORECTAL CANCER METASTATIC
     Dosage: DOSE 600 N.A
     Route: 042
     Dates: start: 20161122, end: 20161122
  3. IRINOTECAN [Concomitant]
     Active Substance: IRINOTECAN
     Indication: COLORECTAL CANCER METASTATIC
     Route: 065
  4. ZALTRAP [Suspect]
     Active Substance: ZIV-AFLIBERCEPT
     Indication: COLORECTAL CANCER METASTATIC
     Route: 042
     Dates: start: 20161122, end: 20161122
  5. FOLINIC ACID [Concomitant]
     Active Substance: LEUCOVORIN
     Indication: COLORECTAL CANCER METASTATIC
     Dosage: DOSE 200 N.A
     Route: 042
     Dates: start: 20161122, end: 20161122

REACTIONS (2)
  - Lung infection [Fatal]
  - Pneumonia [Fatal]

NARRATIVE: CASE EVENT DATE: 20161124
